FAERS Safety Report 15010070 (Version 1)
Quarter: 2018Q2

REPORT INFORMATION
  Report Type: Spontaneous
  Country: US (occurrence: US)
  Receive Date: 20180614
  Receipt Date: 20180614
  Transmission Date: 20180711
  Serious: No
  Sender: FDA-Public Use
  Company Number: US-PFIZER INC-2018241621

PATIENT
  Age: 53 Year
  Sex: Female

DRUGS (1)
  1. GABAPENTIN. [Suspect]
     Active Substance: GABAPENTIN
     Dosage: UNK, 4X/DAY(800)

REACTIONS (5)
  - Dizziness [Unknown]
  - Prescribed overdose [Unknown]
  - Muscular weakness [Unknown]
  - Syncope [Unknown]
  - Drug ineffective [Unknown]
